FAERS Safety Report 8346574-X (Version None)
Quarter: 2012Q2

REPORT INFORMATION
  Report Type: 
  Country: None (occurrence: None)
  Receive Date: 20120509
  Receipt Date: 20120502
  Transmission Date: 20120825
  Serious: Yes (Other)
  Sender: FDA-Public Use
  Company Number: PHHY2012BR038030

PATIENT
  Sex: Female
  Weight: 65 kg

DRUGS (5)
  1. MICARDIS [Concomitant]
     Indication: HYPERTENSION
     Dosage: 1 DF, DAILY
     Route: 048
  2. HYDERGINE [Suspect]
     Indication: BRAIN HYPOXIA
     Dosage: 1 DF, NIGHT
     Dates: start: 20111001
  3. AMLODIPINE [Concomitant]
     Indication: HYPERTENSION
     Dosage: 1 DF, DAILY
     Route: 048
  4. MODURETIC 5-50 [Concomitant]
     Indication: HYPERTENSION
     Dosage: 1 DF, DAILY
     Route: 048
  5. INSULIN HUMAN [Concomitant]
     Indication: DIABETES MELLITUS
     Dosage: 30 IU AT MORNING AND 15 UI AT NIGHT
     Route: 058

REACTIONS (2)
  - FALL [None]
  - LACERATION [None]
